FAERS Safety Report 4895391-1 (Version None)
Quarter: 2006Q1

REPORT INFORMATION
  Report Type: 
  Country: None (occurrence: None)
  Receive Date: 20060130
  Receipt Date: 20041202
  Transmission Date: 20060701
  Serious: No
  Sender: FDA-Public Use
  Company Number: US-GLAXOSMITHKLINE-A0535866A

PATIENT
  Sex: Male

DRUGS (2)
  1. COMBIVIR [Suspect]
     Route: 048
  2. ZIAGEN [Suspect]
     Route: 048
     Dates: start: 20041202

REACTIONS (2)
  - FEELING ABNORMAL [None]
  - NAUSEA [None]
